FAERS Safety Report 14480777 (Version 1)
Quarter: 2018Q1

REPORT INFORMATION
  Report Type: Spontaneous
  Country: US (occurrence: US)
  Receive Date: 20180201
  Receipt Date: 20180201
  Transmission Date: 20180509
  Serious: Yes (Disabling)
  Sender: FDA-Public Use
  Company Number: None

PATIENT
  Age: 51 Year
  Sex: Female
  Weight: 47.25 kg

DRUGS (4)
  1. AMITRYPTALINE [Concomitant]
     Active Substance: AMITRIPTYLINE
  2. CIPROFLOXACIN. [Suspect]
     Active Substance: CIPROFLOXACIN
     Indication: URINARY TRACT INFECTION
     Route: 048
     Dates: start: 20110628
  3. TOPAMAX [Concomitant]
     Active Substance: TOPIRAMATE
  4. MULTIVITAMIN [Concomitant]
     Active Substance: VITAMINS

REACTIONS (4)
  - Cystitis interstitial [None]
  - Arthralgia [None]
  - Gait disturbance [None]
  - Impaired quality of life [None]
